FAERS Safety Report 10519453 (Version 2)
Quarter: 2014Q4

REPORT INFORMATION
  Report Type: Spontaneous
  Country: JP (occurrence: JP)
  Receive Date: 20141015
  Receipt Date: 20141015
  Transmission Date: 20150528
  Serious: Yes (Hospitalization, Other)
  Sender: FDA-Public Use
  Company Number: JP-SA-2014SA116946

PATIENT
  Age: 51 Year
  Sex: Male

DRUGS (8)
  1. FLUOROURACIL. [Suspect]
     Active Substance: FLUOROURACIL
     Indication: RECTAL CANCER METASTATIC
     Dosage: 400 MG/M2; DAY 1,2
     Route: 040
     Dates: start: 20091126, end: 20101005
  2. FLUOROURACIL. [Suspect]
     Active Substance: FLUOROURACIL
     Indication: RECTAL CANCER METASTATIC
     Dosage: 22 HR CONTINOUS INFUSION; 600 MG/M2; DAY 1,2
     Route: 041
     Dates: start: 20091126, end: 20101005
  3. OXALIPLATIN. [Suspect]
     Active Substance: OXALIPLATIN
     Indication: RECTAL CANCER METASTATIC
     Dosage: INFUSION SOLUTION; 100 MG/M2; DAY 1.
     Route: 041
     Dates: start: 20091126, end: 20101004
  4. AVASTIN [Suspect]
     Active Substance: BEVACIZUMAB
     Indication: RECTAL CANCER METASTATIC
     Route: 065
  5. LEUCOVORIN [Suspect]
     Active Substance: LEUCOVORIN
     Indication: RECTAL CANCER METASTATIC
     Dosage: DAY1.
     Route: 065
     Dates: start: 20091126, end: 20101005
  6. LEUCOVORIN [Suspect]
     Active Substance: LEUCOVORIN
     Indication: RECTAL CANCER METASTATIC
     Route: 065
  7. AVASTIN [Suspect]
     Active Substance: BEVACIZUMAB
     Indication: RECTAL CANCER METASTATIC
     Dosage: 5 MG/KG; DAY 1
     Route: 041
     Dates: start: 20091126, end: 20101004
  8. FLUOROURACIL. [Suspect]
     Active Substance: FLUOROURACIL
     Indication: RECTAL CANCER METASTATIC
     Route: 065

REACTIONS (11)
  - Splenomegaly [Unknown]
  - Hypersensitivity [Unknown]
  - Portal hypertension [Unknown]
  - Stoma site haemorrhage [Recovered/Resolved]
  - Anaemia [Unknown]
  - Hepatic vein dilatation [Unknown]
  - Intestinal varices [Recovering/Resolving]
  - Thrombocytopenia [Recovered/Resolved]
  - Blood pressure decreased [Unknown]
  - Heart rate increased [Unknown]
  - Depressed level of consciousness [Unknown]

NARRATIVE: CASE EVENT DATE: 201010
